FAERS Safety Report 6859294-5 (Version None)
Quarter: 2010Q3

REPORT INFORMATION
  Report Type: 
  Country: None (occurrence: None)
  Receive Date: 20100719
  Receipt Date: 20080225
  Transmission Date: 20110219
  Serious: No
  Sender: FDA-Public Use
  Company Number: US-PFIZER INC-2008018504

PATIENT
  Sex: Female
  Weight: 129 kg

DRUGS (2)
  1. CHANTIX [Suspect]
     Indication: SMOKING CESSATION THERAPY
     Dates: start: 20070301, end: 20080101
  2. PAXIL [Concomitant]

REACTIONS (7)
  - DEPRESSION [None]
  - HYPERPHAGIA [None]
  - HYPERSOMNIA [None]
  - NAUSEA [None]
  - TOBACCO USER [None]
  - WEIGHT DECREASED [None]
  - WEIGHT INCREASED [None]
